FAERS Safety Report 24930805 (Version 1)
Quarter: 2025Q1

REPORT INFORMATION
  Report Type: Report from Study
  Country: US (occurrence: US)
  Receive Date: 20250205
  Receipt Date: 20250205
  Transmission Date: 20250409
  Serious: No
  Sender: AURINIA PHARMACEUTICALS
  Company Number: US-AURINIA PHARMACEUTICALS INC.-AUR-007038

PATIENT
  Sex: Female

DRUGS (1)
  1. LUPKYNIS [Suspect]
     Active Substance: VOCLOSPORIN
     Indication: Lupus nephritis
     Dosage: 23.7 MILLIGRAM, BID
     Route: 048
     Dates: start: 20211220

REACTIONS (7)
  - White matter lesion [Unknown]
  - Migraine [Not Recovered/Not Resolved]
  - Lung disorder [Not Recovered/Not Resolved]
  - Photophobia [Unknown]
  - Blood creatinine increased [Unknown]
  - Headache [Not Recovered/Not Resolved]
  - Anaemia [Unknown]
